FAERS Safety Report 12536229 (Version 1)
Quarter: 2016Q3

REPORT INFORMATION
  Report Type: Spontaneous
  Country: FR (occurrence: FR)
  Receive Date: 20160707
  Receipt Date: 20160707
  Transmission Date: 20161109
  Serious: Yes (Hospitalization, Other)
  Sender: FDA-Public Use
  Company Number: FR-GLAXOSMITHKLINE-FR2016GSK095852

PATIENT
  Age: 87 Year
  Sex: Male

DRUGS (6)
  1. RAMIPRIL. [Concomitant]
     Active Substance: RAMIPRIL
     Dosage: UNK
  2. KARDEGIC [Interacting]
     Active Substance: ASPIRIN LYSINE
     Dosage: 75 MG, QD
     Route: 048
     Dates: end: 20160508
  3. EFFERALGAN [Concomitant]
     Active Substance: ACETAMINOPHEN
     Dosage: 500 MG, UNK
  4. VOLTARENE [Suspect]
     Active Substance: DICLOFENAC SODIUM
     Indication: ARTHRALGIA
     Dosage: 75 MG, QD
     Route: 048
     Dates: start: 201604, end: 20160508
  5. LASILIX [Concomitant]
     Active Substance: FUROSEMIDE
     Dosage: UNK
  6. BISOPROLOL [Concomitant]
     Active Substance: BISOPROLOL

REACTIONS (4)
  - Drug interaction [Unknown]
  - Melaena [Recovered/Resolved]
  - Anaemia [Recovered/Resolved]
  - Duodenal ulcer [Recovered/Resolved]

NARRATIVE: CASE EVENT DATE: 20160508
